FAERS Safety Report 20040536 (Version 1)
Quarter: 2021Q4

REPORT INFORMATION
  Report Type: Spontaneous
  Country: US (occurrence: None)
  Receive Date: 20211106
  Receipt Date: 20211106
  Transmission Date: 20220304
  Serious: Yes (Life-Threatening)
  Sender: FDA-Public Use
  Company Number: None

PATIENT
  Age: 66 Year
  Sex: Female
  Weight: 58.95 kg

DRUGS (5)
  1. AMOXICILLIN\CLAVULANATE POTASSIUM [Suspect]
     Active Substance: AMOXICILLIN\CLAVULANATE POTASSIUM
     Indication: Sinusitis
     Dosage: OTHER STRENGTH : UNKNOWN;?OTHER QUANTITY : 1 TABLET(S);?
     Route: 048
     Dates: start: 20211105, end: 20211105
  2. fomoterol/budesonide inhaler [Concomitant]
  3. POTASSIUM [Concomitant]
     Active Substance: POTASSIUM
  4. CALCIUM [Concomitant]
     Active Substance: CALCIUM
  5. MAGNESIUM [Concomitant]
     Active Substance: MAGNESIUM

REACTIONS (6)
  - Headache [None]
  - Dyspnoea [None]
  - Vomiting [None]
  - Diarrhoea [None]
  - Abdominal pain [None]
  - Urticaria [None]

NARRATIVE: CASE EVENT DATE: 20211105
